FAERS Safety Report 9342716 (Version 1)
Quarter: 2013Q2

REPORT INFORMATION
  Report Type: Spontaneous
  Country: NL (occurrence: None)
  Receive Date: 20130530
  Receipt Date: 20130530
  Transmission Date: 20140414
  Serious: Yes (Death, Hospitalization)
  Sender: FDA-Public Use
  Company Number: TPA2013A01797

PATIENT
  Age: 80 Year
  Sex: Female

DRUGS (12)
  1. ADENURIC [Suspect]
     Indication: GOUT
     Route: 048
     Dates: start: 20130211, end: 20130216
  2. PERINDOPRIL (PERINDOPRIL) [Concomitant]
  3. ALFACALCIDOL (ALFACALCIDOL) [Concomitant]
  4. ALLOPURINOL [Concomitant]
  5. NITROGLYCERINE (GLYCERYL TRINITRATE) [Concomitant]
  6. ATENOLOL (ATENOLOL) [Concomitant]
  7. ACETYLSALICYCLIC ACID (ACETYLSALICYCLIC ACID) [Concomitant]
  8. MONO CETOCARD RETARD (ISOSORBIDE MONONITRATE) [Concomitant]
  9. DESLORATADINE (DESLORATADINE) [Concomitant]
  10. ROSUVASTATINE (ROSUVASTATIN CALCIUM) [Concomitant]
  11. HYDROCHLOROTHIAZIDE (HYDROCHLOROTHIAZIDE) [Concomitant]
  12. CETOMAGROL (MACROGOL) [Concomitant]

REACTIONS (12)
  - Multi-organ failure [None]
  - Pruritus [None]
  - Pain in extremity [None]
  - Nausea [None]
  - Vomiting [None]
  - Hepatic necrosis [None]
  - Renal failure [None]
  - Hepatic failure [None]
  - Thrombocytopenia [None]
  - International normalised ratio increased [None]
  - Shock [None]
  - Squamous cell carcinoma of lung [None]
